FAERS Safety Report 16911068 (Version 1)
Quarter: 2019Q4

REPORT INFORMATION
  Report Type: Spontaneous
  Country: US (occurrence: US)
  Receive Date: 20190821
  Receipt Date: 20190821
  Transmission Date: 20200122
  Serious: Yes (Hospitalization)
  Sender: FDA-Public Use
  Company Number: None

PATIENT
  Age: 67 Year
  Sex: Male

DRUGS (9)
  1. VALSARTAN. [Concomitant]
     Active Substance: VALSARTAN
  2. FUROSEMIDE. [Concomitant]
     Active Substance: FUROSEMIDE
  3. LANTUS [Concomitant]
     Active Substance: INSULIN GLARGINE
  4. IMATINIB 100MG [Suspect]
     Active Substance: IMATINIB
     Route: 048
     Dates: start: 20171220
  5. ESCITALOPRAM [Concomitant]
     Active Substance: ESCITALOPRAM OXALATE
  6. CARVEDILOL. [Concomitant]
     Active Substance: CARVEDILOL
  7. CLONAZEPAM. [Concomitant]
     Active Substance: CLONAZEPAM
  8. SPIRONOLACT [Concomitant]
     Active Substance: SPIRONOLACTONE
  9. TAMSULOSIN [Concomitant]
     Active Substance: TAMSULOSIN

REACTIONS (2)
  - Cardiac failure congestive [None]
  - Arthralgia [None]
